FAERS Safety Report 19068855 (Version 1)
Quarter: 2021Q1

REPORT INFORMATION
  Report Type: Spontaneous
  Country: US (occurrence: US)
  Receive Date: 20210329
  Receipt Date: 20210329
  Transmission Date: 20210420
  Serious: Yes (Other)
  Sender: FDA-Public Use
  Company Number: US-GLAXOSMITHKLINE-USCH2021015688

PATIENT
  Age: 48 Year
  Sex: Female

DRUGS (1)
  1. CITRUCEL CAPLETS [Suspect]
     Active Substance: METHYLCELLULOSES
     Indication: GASTROINTESTINAL DISORDER
     Dosage: 2 DF, 1D

REACTIONS (2)
  - Dependence [Unknown]
  - Product use issue [Unknown]
